FAERS Safety Report 7778502 (Version 4)
Quarter: 2021Q3

REPORT INFORMATION
  Report Type: Spontaneous
  Country: GB (occurrence: GB)
  Receive Date: 20110128
  Receipt Date: 20210701
  Transmission Date: 20211014
  Serious: Yes (Other)
  Sender: FDA-Public Use
  Company Number: PHHY2010GB90037

PATIENT
  Age: 75 Year
  Sex: Female

DRUGS (11)
  1. DEXAMETHASONE. [Suspect]
     Active Substance: DEXAMETHASONE
     Indication: PROPHYLAXIS
     Dosage: 1 %, QID
     Route: 061
  2. CEFUROXIME. [Suspect]
     Active Substance: CEFUROXIME
     Indication: KERATITIS FUNGAL
     Dosage: 5 %, UNK
     Route: 065
  3. VORICONAZOLE. [Suspect]
     Active Substance: VORICONAZOLE
     Dosage: 200 MG, BID
     Route: 065
  4. FLUCONAZOLE. [Suspect]
     Active Substance: FLUCONAZOLE
     Indication: KERATITIS FUNGAL
     Dosage: 0.2 %, UNK
     Route: 061
  5. VORICONAZOLE. [Suspect]
     Active Substance: VORICONAZOLE
     Indication: KERATITIS FUNGAL
     Dosage: 400 MG, LOADING DOSE
     Route: 048
  6. GENTAMICIN. [Suspect]
     Active Substance: GENTAMICIN
     Indication: KERATITIS FUNGAL
     Dosage: 1.5 %, UNK
     Route: 065
  7. ITRACONAZOLE. [Suspect]
     Active Substance: ITRACONAZOLE
     Indication: KERATITIS FUNGAL
     Dosage: 100 MG, BID
     Route: 048
  8. GENTAMICIN. [Suspect]
     Active Substance: GENTAMICIN
     Indication: KERATITIS FUNGAL
     Route: 065
  9. GENTAMICIN. [Suspect]
     Active Substance: GENTAMICIN
     Dosage: 0.3 %, UNK
     Route: 065
  10. OFLOXACIN. [Suspect]
     Active Substance: OFLOXACIN
     Indication: KERATITIS FUNGAL
     Dosage: UNK UKN, UNK
     Route: 065
  11. AMPHOTERICIN B. [Suspect]
     Active Substance: AMPHOTERICIN B
     Indication: PROPHYLAXIS
     Dosage: 0.15 %, UNK
     Route: 065

REACTIONS (8)
  - Corneal oedema [Recovered/Resolved]
  - Dacryocanaliculitis [Unknown]
  - Eye pruritus [Unknown]
  - Drug resistance [Unknown]
  - Keratitis fungal [Unknown]
  - Transplant rejection [Recovered/Resolved]
  - Keratitis [Recovered/Resolved]
  - Eye abscess [Recovered/Resolved]
